FAERS Safety Report 9281610 (Version 2)
Quarter: 2013Q4

REPORT INFORMATION
  Report Type: Report from Study
  Country: IE (occurrence: IE)
  Receive Date: 20130509
  Receipt Date: 20131027
  Transmission Date: 20140711
  Serious: Yes (Hospitalization, Other)
  Sender: FDA-Public Use
  Company Number: IE-US-EMD SERONO, INC.-7209115

PATIENT
  Age: 65 Year
  Sex: Female

DRUGS (7)
  1. SAIZEN [Suspect]
     Indication: HYPOPITUITARISM
     Route: 058
     Dates: start: 20120301
  2. RAMELTEON [Concomitant]
     Indication: CARDIAC DISORDER
  3. RAMIPRIL [Concomitant]
     Indication: PRODUCT USED FOR UNKNOWN INDICATION
  4. BISOPROLOL [Concomitant]
     Indication: PRODUCT USED FOR UNKNOWN INDICATION
  5. ELTROXIN [Concomitant]
     Indication: THYROID DISORDER
  6. LIPITOR [Concomitant]
     Indication: BLOOD CHOLESTEROL
  7. RADISOL [Concomitant]
     Indication: GASTROINTESTINAL DISORDER

REACTIONS (2)
  - Cardiomegaly [Recovering/Resolving]
  - Diabetes mellitus [Recovering/Resolving]
